FAERS Safety Report 8155654-3 (Version None)
Quarter: 2012Q1

REPORT INFORMATION
  Report Type: 
  Country: None (occurrence: None)
  Receive Date: 20120222
  Receipt Date: 20120220
  Transmission Date: 20120608
  Serious: Yes (Other)
  Sender: FDA-Public Use
  Company Number: US-PFIZER INC-2012044820

PATIENT
  Sex: Male

DRUGS (1)
  1. CELEBREX [Suspect]
     Indication: PAIN IN EXTREMITY
     Dosage: 200 MG, 1X/DAY
     Route: 048
     Dates: end: 20120210

REACTIONS (1)
  - ULCER [None]
